FAERS Safety Report 9132091 (Version 1)
Quarter: 2013Q1

REPORT INFORMATION
  Report Type: Spontaneous
  Country: US (occurrence: US)
  Receive Date: 20130107
  Receipt Date: 20130107
  Transmission Date: 20140127
  Serious: Yes (Other)
  Sender: FDA-Public Use
  Company Number: US-TARO-2012P1012197

PATIENT
  Age: 65 Year
  Sex: Male
  Weight: 89.36 kg

DRUGS (3)
  1. WARFARIN SODIUM TABLETS USP 5MG [Suspect]
     Indication: ATRIAL FIBRILLATION
     Route: 048
     Dates: start: 201110
  2. PRAVASTATIN [Concomitant]
  3. PROPAFENONE [Concomitant]

REACTIONS (3)
  - Leukopenia [Unknown]
  - Neutrophil count decreased [Unknown]
  - Protein total decreased [Unknown]
